FAERS Safety Report 8268896-3 (Version None)
Quarter: 2012Q1

REPORT INFORMATION
  Report Type: 
  Country: None (occurrence: None)
  Receive Date: 20120327
  Receipt Date: 20100429
  Transmission Date: 20120608
  Serious: Yes (Hospitalization, Other)
  Sender: FDA-Public Use
  Company Number: PHEH2009US04677

PATIENT
  Age: 70 Year
  Sex: Male

DRUGS (14)
  1. ALDACTONE [Concomitant]
  2. LANTUS [Concomitant]
  3. METFORMIN HCL [Concomitant]
  4. METOPROLOL TARTRATE [Concomitant]
  5. LIPITOR [Concomitant]
  6. GLEEVEC [Suspect]
     Indication: GASTROINTESTINAL STROMAL TUMOUR
     Dosage: 600 MG, QD, ORAL
     Route: 048
     Dates: start: 20090422, end: 20100428
  7. METHYLDOPA [Concomitant]
  8. NEXIUM [Concomitant]
  9. SIMVASTATIN [Concomitant]
  10. ALBUTEROL [Concomitant]
  11. VITAMIN D [Concomitant]
  12. AMIODARONE HCL [Concomitant]
  13. MAGESIUM OXIDE (MAGNESIUM OXIDE) [Concomitant]
  14. LOPRESSOR [Concomitant]

REACTIONS (6)
  - FACE OEDEMA [None]
  - OEDEMA PERIPHERAL [None]
  - HAEMODIALYSIS [None]
  - RENAL FAILURE CHRONIC [None]
  - GASTROINTESTINAL STROMAL TUMOUR [None]
  - FLUID OVERLOAD [None]
